FAERS Safety Report 7717625-8 (Version None)
Quarter: 2011Q3

REPORT INFORMATION
  Report Type: 
  Country: None (occurrence: None)
  Receive Date: 20110830
  Receipt Date: 20110830
  Transmission Date: 20111222
  Serious: Yes (Other)
  Sender: FDA-Public Use
  Company Number: None

PATIENT
  Age: 40 Year
  Sex: Female
  Weight: 61.234 kg

DRUGS (1)
  1. PHENAZOPYRIDINE HCL TAB [Suspect]
     Indication: URINARY TRACT INFECTION
     Dosage: 200 MG
     Route: 048
     Dates: start: 20110828, end: 20110828

REACTIONS (2)
  - RASH GENERALISED [None]
  - FEELING ABNORMAL [None]
